FAERS Safety Report 6740018-7 (Version None)
Quarter: 2010Q2

REPORT INFORMATION
  Report Type: 
  Country: None (occurrence: None)
  Receive Date: 20100520
  Receipt Date: 20090714
  Transmission Date: 20101027
  Serious: No
  Sender: FDA-Public Use
  Company Number: 2009-00363

PATIENT
  Age: 52 Year
  Sex: Female
  Weight: 145.151 kg

DRUGS (3)
  1. ZICAM COLD REMEDY GEL SWABS [Suspect]
     Dosage: QD X 7 DAYS
     Dates: start: 20090423, end: 20090430
  2. ADALAT [Concomitant]
  3. ZESTRIL [Concomitant]

REACTIONS (2)
  - AGEUSIA [None]
  - ANOSMIA [None]
